FAERS Safety Report 5600686-X (Version None)
Quarter: 2008Q1

REPORT INFORMATION
  Report Type: 
  Country: None (occurrence: None)
  Receive Date: 20080123
  Receipt Date: 20080116
  Transmission Date: 20080703
  Serious: Yes (Other)
  Sender: FDA-Public Use
  Company Number: US-PFIZER INC-2007101037

PATIENT
  Sex: Female
  Weight: 59 kg

DRUGS (10)
  1. ZYRTEC [Suspect]
     Indication: HYPERSENSITIVITY
  2. ZYRTEC [Suspect]
     Indication: RHINORRHOEA
  3. ZYRTEC [Suspect]
     Indication: SINUS OPERATION
  4. COZAAR [Concomitant]
  5. METOPROLOL TARTRATE [Concomitant]
  6. POTASSIUM CHLORIDE [Concomitant]
  7. LISINOPRIL [Concomitant]
     Indication: HYPERTENSION
  8. SYNTHROID [Concomitant]
     Indication: THYROID DISORDER
  9. DIAZEPAM [Concomitant]
     Indication: SLEEP DISORDER
     Dosage: DAILY DOSE:2.5MG
  10. FUROSEMIDE [Concomitant]

REACTIONS (2)
  - DRUG EFFECT DECREASED [None]
  - SKIN CANCER [None]
